FAERS Safety Report 5887166-1 (Version None)
Quarter: 2008Q3

REPORT INFORMATION
  Report Type: 
  Country: None (occurrence: None)
  Receive Date: 20080917
  Receipt Date: 20080909
  Transmission Date: 20090109
  Serious: Yes (Other)
  Sender: FDA-Public Use
  Company Number: AU-PFIZER INC-2008076162

PATIENT
  Age: 51 Year
  Sex: Female

DRUGS (2)
  1. ZELDOX (CAPSULES) [Suspect]
     Indication: MAJOR DEPRESSION
     Route: 048
     Dates: start: 20080520, end: 20080605
  2. PROTHIADEN [Concomitant]

REACTIONS (5)
  - ACUTE MYOCARDIAL INFARCTION [None]
  - CYANOSIS [None]
  - DIARRHOEA [None]
  - INFLUENZA LIKE ILLNESS [None]
  - SEROTONIN SYNDROME [None]
